FAERS Safety Report 17723069 (Version 1)
Quarter: 2020Q2

REPORT INFORMATION
  Report Type: Spontaneous
  Country: US (occurrence: US)
  Receive Date: 20200429
  Receipt Date: 20200429
  Transmission Date: 20200714
  Serious: No
  Sender: FDA-Public Use
  Company Number: US-FARMAPROD-202001-0033

PATIENT
  Age: 68 Year
  Sex: Female

DRUGS (9)
  1. FLECAINIDE [Concomitant]
     Active Substance: FLECAINIDE
     Route: 048
  2. OXERVATE [Suspect]
     Active Substance: CENEGERMIN-BKBJ
     Indication: NEUROTROPHIC KERATOPATHY
     Route: 047
     Dates: start: 20191230, end: 20200106
  3. OXERVATE [Suspect]
     Active Substance: CENEGERMIN-BKBJ
     Route: 047
     Dates: start: 20200117
  4. VITAMINE C [Concomitant]
     Active Substance: ASCORBIC ACID
     Route: 048
  5. VITAMINE A [Concomitant]
     Active Substance: RETINOL
     Route: 048
  6. MELOXICAM. [Concomitant]
     Active Substance: MELOXICAM
     Route: 048
  7. REFRESH CELLUVISC [Concomitant]
     Active Substance: CARBOXYMETHYLCELLULOSE SODIUM
     Route: 047
     Dates: start: 20191123
  8. XARELTO [Concomitant]
     Active Substance: RIVAROXABAN
     Route: 048
  9. CRESTOR [Concomitant]
     Active Substance: ROSUVASTATIN CALCIUM
     Route: 048

REACTIONS (2)
  - Eye infection [Unknown]
  - Ulcer [Recovered/Resolved]

NARRATIVE: CASE EVENT DATE: 20191123
